FAERS Safety Report 9149366 (Version 1)
Quarter: 2013Q1

REPORT INFORMATION
  Report Type: Spontaneous
  Country: US (occurrence: None)
  Receive Date: 20130228
  Receipt Date: 20130228
  Transmission Date: 20140127
  Serious: Yes (Hospitalization)
  Sender: FDA-Public Use
  Company Number: None

PATIENT
  Sex: Female
  Weight: 77.8 kg

DRUGS (3)
  1. CARBOPLATIN [Suspect]
  2. CISPLATIN [Suspect]
  3. PACLITAXEL (TAXOL) [Suspect]

REACTIONS (6)
  - Tremor [None]
  - Dizziness [None]
  - Loss of consciousness [None]
  - Somnolence [None]
  - Confusional state [None]
  - Presyncope [None]
